FAERS Safety Report 13347147 (Version 3)
Quarter: 2017Q4

REPORT INFORMATION
  Report Type: Spontaneous
  Country: US (occurrence: US)
  Receive Date: 20170317
  Receipt Date: 20171030
  Transmission Date: 20180320
  Serious: No
  Sender: FDA-Public Use
  Company Number: US-PFIZER INC-2017111307

PATIENT
  Age: 76 Year
  Sex: Female
  Weight: 89.81 kg

DRUGS (29)
  1. LYRICA [Suspect]
     Active Substance: PREGABALIN
     Indication: NEURALGIA
     Dosage: 100 MG, 2X/DAY
     Route: 048
  2. LYRICA [Suspect]
     Active Substance: PREGABALIN
     Indication: PAIN
     Dosage: 100 MG, 2X/DAY
     Route: 048
     Dates: start: 20161101
  3. BUSPAR [Concomitant]
     Active Substance: BUSPIRONE HYDROCHLORIDE
     Dosage: 10 MG, 3X/DAY
     Route: 048
  4. TENEX [Concomitant]
     Active Substance: GUANFACINE HYDROCHLORIDE
     Dosage: 0.5 MG, 1X/DAY, (0.5 TABLETS BY MOUTH NIGHTLY)
     Route: 048
  5. CENTRUM SILVER ADULTS 50+ [Concomitant]
     Active Substance: MINERALS\VITAMINS
     Dosage: 1 DF, DAILY
     Route: 048
  6. PROTONIX [Concomitant]
     Active Substance: PANTOPRAZOLE SODIUM
     Dosage: 40 MG, 2X/DAY, (BEFORE MEALS)
     Route: 048
  7. NORVASC [Concomitant]
     Active Substance: AMLODIPINE BESYLATE
     Dosage: 5 MG, 1X/DAY, (1 TABLET BY MOUTH NIGHTLY)
  8. VOLTAREN [Concomitant]
     Active Substance: DICLOFENAC SODIUM
     Dosage: UNK UNK, AS NEEDED, (APPLY 2-4 GRAMS PER JOINT FOUR TIMES A DAY, PRN)
  9. HYDROCODONE-ACETAMINOPHEN [Concomitant]
     Active Substance: ACETAMINOPHEN\HYDROCODONE
     Indication: PAIN
     Dosage: 1 DF, AS NEEDED, (EVERY 6 HOURS AS NEEDED; ACETAMINOPHEN 300 MG/HYDROCODONE 10 MG)
     Route: 048
  10. LYRICA [Suspect]
     Active Substance: PREGABALIN
     Indication: NEUROPATHY PERIPHERAL
     Dosage: 100 MG, 2X/DAY
     Route: 048
     Dates: start: 20160308
  11. ELAVIL [Concomitant]
     Active Substance: AMITRIPTYLINE HYDROCHLORIDE
     Dosage: UNK UNK, CYCLIC, (CHANGE TO 1/2 TAB NIGHTLY FOR 2 WK THEN 1/2 TAB EVERY OTHER DAY FOR 1 WK THEN OFF)
     Route: 048
  12. CALCIUM + VIT D [Concomitant]
     Active Substance: CALCIUM\VITAMIN D
     Dosage: UNK UNK, DAILY
     Route: 048
  13. ZYRTEC [Concomitant]
     Active Substance: CETIRIZINE HYDROCHLORIDE
     Dosage: 10 MG, DAILY
     Route: 048
  14. MYRBETRIQ [Concomitant]
     Active Substance: MIRABEGRON
     Dosage: 50 MG, DAILY
     Route: 048
  15. LOTRISONE [Concomitant]
     Active Substance: BETAMETHASONE DIPROPIONATE\CLOTRIMAZOLE
     Dosage: UNK, (BID X 2 WK)
     Route: 061
  16. HYDROCODONE-ACETAMINOPHEN [Concomitant]
     Active Substance: ACETAMINOPHEN\HYDROCODONE
     Dosage: 1 DF, AS NEEDED, (EVERY 6 HOURS AS NEEDED; ACETAMINOPHEN 300 MG/HYDROCODONE 10 MG)
     Route: 048
     Dates: start: 20151218
  17. NORMODYNE [Concomitant]
     Active Substance: LABETALOL HYDROCHLORIDE
     Dosage: 300 MG, 2X/DAY
     Route: 048
  18. ZANAFLEX [Concomitant]
     Active Substance: TIZANIDINE HYDROCHLORIDE
     Dosage: 2 MG, AS NEEDED, (TWICE DAILY AS NEEDED)
  19. COZAAR [Concomitant]
     Active Substance: LOSARTAN POTASSIUM
     Dosage: 50 MG, 2X/DAY
     Route: 048
  20. BAZA ANTIFUNGAL [Concomitant]
     Active Substance: MICONAZOLE NITRATE
     Dosage: UNK UNK, 2X/DAY, (APPLY TO AFFECTED AREA)
  21. CALAN [Concomitant]
     Active Substance: VERAPAMIL HYDROCHLORIDE
     Dosage: 60 MG, 2X/DAY
     Route: 048
  22. DILAUDID [Concomitant]
     Active Substance: HYDROMORPHONE HYDROCHLORIDE
     Indication: PAIN
     Dosage: 2 MG, AS NEEDED (EVERY 4 HOUR)
  23. LIPITOR [Concomitant]
     Active Substance: ATORVASTATIN CALCIUM
     Dosage: 10 MG, 1X/DAY, (1 TABLET BY MOUTH NIGHTLY)
     Route: 048
  24. HYGROTON [Concomitant]
     Active Substance: CHLORTHALIDONE
     Dosage: 25 MG, DAILY
     Route: 048
  25. ALDACTONE [Concomitant]
     Active Substance: SPIRONOLACTONE
     Dosage: 12.5 MG, DAILY
     Route: 048
  26. ICAR-C [Concomitant]
     Dosage: 1 DF, DAILY
     Route: 048
  27. LYRICA [Suspect]
     Active Substance: PREGABALIN
     Indication: LUMBAR RADICULOPATHY
     Dosage: 100 MG, 2X/DAY
     Route: 048
     Dates: start: 20170628
  28. MAGNESIUM OXIDE. [Concomitant]
     Active Substance: MAGNESIUM OXIDE
     Dosage: 400 MG, 2X/DAY
     Route: 048
  29. GLYCOLAX [Concomitant]
     Active Substance: POLYETHYLENE GLYCOL 3350
     Dosage: UNK, (DISSOLVE 1 CAPFUL (17 GRAMS) INTO 4 TO 8 OUNCES OF WATER, JUICE, COFFEE OR TEA AND DRINK)

REACTIONS (2)
  - Nerve injury [Unknown]
  - Limb injury [Unknown]

NARRATIVE: CASE EVENT DATE: 20170121
